FAERS Safety Report 23867431 (Version 1)
Quarter: 2024Q2

REPORT INFORMATION
  Report Type: Spontaneous
  Country: NL (occurrence: NL)
  Receive Date: 20240517
  Receipt Date: 20240517
  Transmission Date: 20240716
  Serious: Yes (Other)
  Sender: FDA-Public Use
  Company Number: None

PATIENT
  Age: 74 Year
  Sex: Female
  Weight: 53 kg

DRUGS (4)
  1. GEMCITABINE [Suspect]
     Active Substance: GEMCITABINE
     Indication: Pancreatic carcinoma
     Dosage: 1 X PER WEEK 1600 MG. (2 GIVEN).
     Route: 065
     Dates: start: 20240319
  2. PACLITAXEL [Suspect]
     Active Substance: PACLITAXEL
     Indication: Pancreatic carcinoma
     Dosage: 1 X PER WEEK 200 MG. (2 GIVEN).
     Route: 065
     Dates: start: 20240319
  3. CREON FORTE [Concomitant]
     Indication: Product used for unknown indication
     Dosage: MAAGSAPRESISTENTE CAPSULE, 18000/25000/1000 FE
     Route: 065
  4. DEXAMETHASONE [Concomitant]
     Active Substance: DEXAMETHASONE
     Indication: Product used for unknown indication
     Dosage: TABLET, 4 MG (MILLIGRAM)
     Route: 065

REACTIONS (1)
  - Thrombophlebitis [Not Recovered/Not Resolved]
